FAERS Safety Report 13096590 (Version 1)
Quarter: 2017Q1

REPORT INFORMATION
  Report Type: Spontaneous
  Country: CA (occurrence: CA)
  Receive Date: 20170109
  Receipt Date: 20170109
  Transmission Date: 20170428
  Serious: Yes (Hospitalization)
  Sender: FDA-Public Use
  Company Number: CA-TEVA-725864ACC

PATIENT
  Age: 46 Year
  Sex: Male
  Weight: 99.88 kg

DRUGS (9)
  1. GLYBURIDE. [Concomitant]
     Active Substance: GLYBURIDE
  2. ROSUVASTATIN. [Concomitant]
     Active Substance: ROSUVASTATIN
  3. PIPERACILLIN AND TAZOBACTAM [Concomitant]
     Active Substance: PIPERACILLIN SODIUM\TAZOBACTAM SODIUM
  4. JANUVIA [Concomitant]
     Active Substance: SITAGLIPTIN PHOSPHATE
  5. ACETAMINOPHEN. [Concomitant]
     Active Substance: ACETAMINOPHEN
  6. DIMENHYDRINATE. [Concomitant]
     Active Substance: DIMENHYDRINATE
  7. TELMISARTAN. [Concomitant]
     Active Substance: TELMISARTAN
  8. CLARITHROMYCIN. [Suspect]
     Active Substance: CLARITHROMYCIN
     Indication: PNEUMONIA
     Dosage: 1000 MILLIGRAM DAILY;
     Route: 048
  9. METFORMIN [Concomitant]
     Active Substance: METFORMIN HYDROCHLORIDE

REACTIONS (4)
  - Sepsis [Recovered/Resolved]
  - Acute kidney injury [Recovered/Resolved]
  - Bladder obstruction [Recovered/Resolved]
  - Blood creatinine increased [Recovered/Resolved]
